FAERS Safety Report 8961284 (Version 1)
Quarter: 2012Q4

REPORT INFORMATION
  Report Type: 
  Country: PL (occurrence: PL)
  Receive Date: 20121213
  Receipt Date: 20121213
  Transmission Date: 20130627
  Serious: Yes (Hospitalization)
  Sender: FDA-Public Use
  Company Number: PL-JNJFOC-2003173074PL

PATIENT
  Age: 19 Year
  Sex: Female
  Weight: 66.01 kg

DRUGS (7)
  1. MOTRIN [Suspect]
     Indication: PAIN
     Dosage: Daily Dose Text: ^high doses^
  2. DICLOFENAC [Suspect]
     Indication: PAIN
     Dosage: Daily Dose Text: ^high doses^
  3. PARACETAMOL [Suspect]
  4. PARACETAMOL [Suspect]
     Indication: PAIN
  5. PYRALGIN [Suspect]
     Indication: PAIN
  6. KETOPROFEN [Suspect]
     Indication: PAIN
  7. ANALGESICS [Concomitant]
     Indication: PRODUCT USED FOR UNKNOWN INDICATION

REACTIONS (4)
  - Necrotising fasciitis [Unknown]
  - Streptococcal infection [Unknown]
  - Septic shock [Unknown]
  - Anaemia [Unknown]
